FAERS Safety Report 23172669 (Version 5)
Quarter: 2025Q3

REPORT INFORMATION
  Report Type: Spontaneous
  Country: CA (occurrence: CA)
  Receive Date: 20231110
  Receipt Date: 20250908
  Transmission Date: 20251020
  Serious: Yes (Hospitalization, Other)
  Sender: SANDOZ
  Company Number: CA-002147023-NVSC2023CA035858

PATIENT
  Age: 26 Year
  Sex: Female
  Weight: 47 kg

DRUGS (42)
  1. ACTEMRA [Suspect]
     Active Substance: TOCILIZUMAB
     Indication: Blau syndrome
     Dosage: 162 MG, Q2W
     Route: 058
  2. ACTEMRA [Suspect]
     Active Substance: TOCILIZUMAB
     Indication: Uveitis
     Dosage: 162 MG, Q4W
     Route: 058
  3. ACTEMRA [Suspect]
     Active Substance: TOCILIZUMAB
     Indication: Juvenile idiopathic arthritis
     Dosage: 360 MG, Q4W
     Route: 040
  4. ACTEMRA [Suspect]
     Active Substance: TOCILIZUMAB
     Route: 040
  5. ACTEMRA [Suspect]
     Active Substance: TOCILIZUMAB
     Route: 040
  6. ACTEMRA [Suspect]
     Active Substance: TOCILIZUMAB
     Route: 040
  7. ACTEMRA [Suspect]
     Active Substance: TOCILIZUMAB
     Route: 040
  8. ACTEMRA [Suspect]
     Active Substance: TOCILIZUMAB
     Route: 040
  9. ACTEMRA [Suspect]
     Active Substance: TOCILIZUMAB
     Route: 040
  10. ACTEMRA [Suspect]
     Active Substance: TOCILIZUMAB
     Route: 040
  11. ACTEMRA [Suspect]
     Active Substance: TOCILIZUMAB
     Route: 040
  12. MYCOPHENOLATE MOFETIL [Suspect]
     Active Substance: MYCOPHENOLATE MOFETIL
     Indication: Uveitis
     Route: 065
  13. MYCOPHENOLATE MOFETIL [Suspect]
     Active Substance: MYCOPHENOLATE MOFETIL
     Indication: Blau syndrome
  14. MYCOPHENOLATE MOFETIL [Suspect]
     Active Substance: MYCOPHENOLATE MOFETIL
     Indication: Sarcoidosis
  15. PREDNISONE [Suspect]
     Active Substance: PREDNISONE
     Indication: Product used for unknown indication
     Route: 065
  16. RITUXIMAB [Suspect]
     Active Substance: RITUXIMAB
     Indication: Juvenile idiopathic arthritis
     Dosage: 1000 MG, 1 EVERY 15 DAYS
     Route: 040
  17. ACCUTANE [Concomitant]
     Active Substance: ISOTRETINOIN
     Indication: Uveitis
     Route: 065
  18. ACCUTANE [Concomitant]
     Active Substance: ISOTRETINOIN
     Indication: Juvenile idiopathic arthritis
  19. ACETAZOLAMIDE [Concomitant]
     Active Substance: ACETAZOLAMIDE
     Indication: Product used for unknown indication
     Route: 065
  20. ADVIL [Concomitant]
     Active Substance: IBUPROFEN
     Indication: Product used for unknown indication
     Route: 065
  21. ARAVA [Concomitant]
     Active Substance: LEFLUNOMIDE
     Indication: Product used for unknown indication
     Route: 065
  22. AZOPT [Concomitant]
     Active Substance: BRINZOLAMIDE
     Indication: Product used for unknown indication
     Route: 065
  23. BENADRYL [Concomitant]
     Active Substance: DIPHENHYDRAMINE HYDROCHLORIDE
     Indication: Premedication
     Route: 048
  24. CANNABIDIOL [Concomitant]
     Active Substance: CANNABIDIOL
     Indication: Product used for unknown indication
     Route: 065
  25. DEXTROAMPHETAMINE [Concomitant]
     Active Substance: DEXTROAMPHETAMINE
     Indication: Product used for unknown indication
     Route: 065
  26. DUREZOL [Concomitant]
     Active Substance: DIFLUPREDNATE
     Indication: Product used for unknown indication
     Route: 065
  27. FLUOROMETHOLONE [Concomitant]
     Active Substance: FLUOROMETHOLONE
     Indication: Product used for unknown indication
     Route: 065
  28. GABAPENTIN [Concomitant]
     Active Substance: GABAPENTIN
     Indication: Product used for unknown indication
     Route: 065
  29. IBUPROFEN [Concomitant]
     Active Substance: IBUPROFEN
     Indication: Product used for unknown indication
     Route: 065
  30. LANSOPRAZOLE [Concomitant]
     Active Substance: LANSOPRAZOLE
     Indication: Product used for unknown indication
     Route: 065
  31. LATANOPROST [Concomitant]
     Active Substance: LATANOPROST
     Indication: Product used for unknown indication
     Route: 065
  32. LEFLUNOMIDE [Concomitant]
     Active Substance: LEFLUNOMIDE
     Indication: Product used for unknown indication
     Route: 065
  33. MAGNESIUM [Concomitant]
     Active Substance: MAGNESIUM
     Indication: Product used for unknown indication
     Route: 065
  34. MELOXICAM [Concomitant]
     Active Substance: MELOXICAM
     Indication: Product used for unknown indication
     Route: 065
  35. NORTRIPTYLINE [Concomitant]
     Active Substance: NORTRIPTYLINE
     Indication: Product used for unknown indication
     Route: 065
  36. PAROXETINE [Concomitant]
     Active Substance: PAROXETINE
     Indication: Product used for unknown indication
     Route: 065
  37. PILOCARPINE [Concomitant]
     Active Substance: PILOCARPINE
     Indication: Product used for unknown indication
     Dosage: 2 %, TID
     Route: 065
  38. SOLU-MEDROL [Concomitant]
     Active Substance: METHYLPREDNISOLONE SODIUM SUCCINATE
     Indication: Premedication
     Route: 042
  39. TIMOLOL MALEATE\TRAVOPROST [Concomitant]
     Active Substance: TIMOLOL MALEATE\TRAVOPROST
     Indication: Product used for unknown indication
     Route: 065
  40. TYLENOL [Concomitant]
     Active Substance: ACETAMINOPHEN
     Indication: Premedication
     Route: 048
  41. VENLAFAXINE [Concomitant]
     Active Substance: VENLAFAXINE HYDROCHLORIDE
     Indication: Product used for unknown indication
     Route: 065
  42. VYVANSE [Concomitant]
     Active Substance: LISDEXAMFETAMINE DIMESYLATE
     Indication: Product used for unknown indication
     Route: 065

REACTIONS (36)
  - Abdominal discomfort [Recovered/Resolved]
  - Aphthous ulcer [Recovered/Resolved]
  - Dry eye [Recovered/Resolved]
  - Encephalitis [Recovered/Resolved]
  - Eye disorder [Recovered/Resolved]
  - Glaucoma [Recovered/Resolved]
  - Joint swelling [Recovered/Resolved]
  - Mouth ulceration [Recovered/Resolved]
  - Oral pain [Recovered/Resolved]
  - Blindness unilateral [Not Recovered/Not Resolved]
  - Condition aggravated [Not Recovered/Not Resolved]
  - Visual impairment [Not Recovered/Not Resolved]
  - Deafness unilateral [Not Recovered/Not Resolved]
  - Back pain [Not Recovered/Not Resolved]
  - Chest pain [Not Recovered/Not Resolved]
  - Dry mouth [Not Recovered/Not Resolved]
  - Dyschezia [Not Recovered/Not Resolved]
  - Gastrooesophageal reflux disease [Not Recovered/Not Resolved]
  - Gastrooesophageal reflux disease [Not Recovered/Not Resolved]
  - Hyperhidrosis [Not Recovered/Not Resolved]
  - Iron deficiency anaemia [Not Recovered/Not Resolved]
  - Mouth ulceration [Not Recovered/Not Resolved]
  - Musculoskeletal stiffness [Not Recovered/Not Resolved]
  - Paraesthesia [Not Recovered/Not Resolved]
  - Raynaud^s phenomenon [Not Recovered/Not Resolved]
  - Arthropathy [Not Recovered/Not Resolved]
  - Arthralgia [Not Recovered/Not Resolved]
  - Arthralgia [Recovered/Resolved]
  - Meningitis [Recovered/Resolved]
  - Heart rate increased [Recovered/Resolved]
  - Depression [Recovered/Resolved]
  - Acne [Recovered/Resolved]
  - Cataract [Recovered/Resolved]
  - Device breakage [Not Recovered/Not Resolved]
  - Drug ineffective [Not Recovered/Not Resolved]
  - Off label use [Not Recovered/Not Resolved]
